FAERS Safety Report 12553371 (Version 1)
Quarter: 2016Q3

REPORT INFORMATION
  Report Type: Spontaneous
  Country: US (occurrence: US)
  Receive Date: 20160713
  Receipt Date: 20160713
  Transmission Date: 20161109
  Serious: Yes (Other)
  Sender: FDA-Public Use
  Company Number: US-BAYER-2016-135872

PATIENT
  Sex: Female

DRUGS (1)
  1. MILK OF MAGNESIA ORIGINAL [Suspect]
     Active Substance: MAGNESIUM HYDROXIDE
     Dosage: 2 TABLESPOON , ONCE, TOOK THE PRODUCT WITH 4 OUNCES OF WATER
     Route: 048
     Dates: start: 20160711, end: 20160711

REACTIONS (3)
  - Cerebrovascular accident [None]
  - Product use issue [None]
  - Malaise [Not Recovered/Not Resolved]

NARRATIVE: CASE EVENT DATE: 20160711
